FAERS Safety Report 17965048 (Version 7)
Quarter: 2021Q4

REPORT INFORMATION
  Report Type: Report from Study
  Country: CA (occurrence: CA)
  Receive Date: 20200630
  Receipt Date: 20211014
  Transmission Date: 20220303
  Serious: Yes (Hospitalization, Other)
  Sender: FDA-Public Use
  Company Number: CA-UCBSA-2020020467

PATIENT
  Age: 47 Year
  Sex: Female

DRUGS (10)
  1. CERTOLIZUMAB PEGOL [Suspect]
     Active Substance: CERTOLIZUMAB PEGOL
     Indication: Ankylosing spondylitis
     Dosage: 400 MILLIGRAM, EV 2 WEEKS(QOW)
     Route: 058
     Dates: start: 20190628, end: 20190726
  2. CERTOLIZUMAB PEGOL [Suspect]
     Active Substance: CERTOLIZUMAB PEGOL
     Dosage: 400 MILLIGRAM, EV 4 WEEKS
     Route: 058
     Dates: start: 20190823, end: 20190920
  3. CERTOLIZUMAB PEGOL [Suspect]
     Active Substance: CERTOLIZUMAB PEGOL
     Dosage: 200 MILLIGRAM, EV 2 WEEKS(QOW)
     Route: 058
     Dates: start: 20191004
  4. LUPRON DEPOT [Concomitant]
     Active Substance: LEUPROLIDE ACETATE
     Indication: Uterine leiomyoma
     Dosage: 3.75 MILLIGRAM, MONTHLY (QM)
  5. NORLUTATE [Concomitant]
     Active Substance: NORETHINDRONE ACETATE
     Indication: Uterine leiomyoma
     Dosage: 5 MILLIGRAM, ONCE DAILY (QD)
  6. INFLUENZA VIRUS VACCINE [Concomitant]
     Active Substance: INFLUENZA VIRUS VACCINE
     Indication: Influenza
     Dosage: 15MCG/0.5 ML
  7. VIMOVO [Concomitant]
     Active Substance: ESOMEPRAZOLE MAGNESIUM\NAPROXEN
     Indication: Post-traumatic neck syndrome
  8. VIMOVO [Concomitant]
     Active Substance: ESOMEPRAZOLE MAGNESIUM\NAPROXEN
     Indication: Muscle strain
  9. NAPROXEN [Concomitant]
     Active Substance: NAPROXEN
     Indication: Post-traumatic neck syndrome
  10. NAPROXEN [Concomitant]
     Active Substance: NAPROXEN
     Indication: Muscle strain

REACTIONS (13)
  - Road traffic accident [Not Recovered/Not Resolved]
  - Post-traumatic neck syndrome [Not Recovered/Not Resolved]
  - Muscle strain [Unknown]
  - Uterine leiomyoma [Not Recovered/Not Resolved]
  - Ankylosing spondylitis [Unknown]
  - COVID-19 immunisation [Unknown]
  - Headache [Unknown]
  - Chills [Unknown]
  - Peripheral swelling [Unknown]
  - Pain in extremity [Unknown]
  - Fatigue [Unknown]
  - Vaccination site pain [Unknown]
  - Vaccination complication [Unknown]

NARRATIVE: CASE EVENT DATE: 20200101
